FAERS Safety Report 8025724-9 (Version None)
Quarter: 2012Q1

REPORT INFORMATION
  Report Type: 
  Country: None (occurrence: None)
  Receive Date: 20120105
  Receipt Date: 20110803
  Transmission Date: 20120608
  Serious: No
  Sender: FDA-Public Use
  Company Number: US-ABBOTT-09P-163-0594235-00

PATIENT
  Sex: Female
  Weight: 101.7 kg

DRUGS (6)
  1. AZMACORT [Concomitant]
     Indication: PRODUCT USED FOR UNKNOWN INDICATION
  2. SYNTHROID [Suspect]
     Dates: start: 20110701
  3. TOPROL-XL [Concomitant]
     Indication: PALPITATIONS
     Dates: start: 20070101
  4. SYNTHROID [Suspect]
     Indication: AUTOIMMUNE THYROIDITIS
     Dosage: PHARMACY WAS CALLED FOR LOT NUMBER, NOT AVAILABLE
     Route: 048
     Dates: start: 20040101, end: 20070101
  5. SYNTHROID [Suspect]
     Indication: HYPOTHYROIDISM
     Route: 048
     Dates: start: 20070101, end: 20110501
  6. SYNTHROID [Suspect]
     Dates: start: 20110501, end: 20110701

REACTIONS (12)
  - ASTHENIA [None]
  - ENERGY INCREASED [None]
  - SENSATION OF FOREIGN BODY [None]
  - DRUG EFFECT DECREASED [None]
  - FATIGUE [None]
  - EXTRASYSTOLES [None]
  - FEELING HOT [None]
  - WEIGHT INCREASED [None]
  - HEART RATE INCREASED [None]
  - BLOOD THYROID STIMULATING HORMONE DECREASED [None]
  - PALPITATIONS [None]
  - HYPERSOMNIA [None]
